FAERS Safety Report 18659267 (Version 1)
Quarter: 2020Q4

REPORT INFORMATION
  Report Type: Spontaneous
  Country: CA (occurrence: CA)
  Receive Date: 20201223
  Receipt Date: 20201223
  Transmission Date: 20210114
  Serious: Yes (Other)
  Sender: FDA-Public Use
  Company Number: CA-ASTRAZENECA-2020SF70499

PATIENT
  Age: 75 Year
  Sex: Male
  Weight: 79.4 kg

DRUGS (3)
  1. ROSUVASTATIN. [Suspect]
     Active Substance: ROSUVASTATIN
     Indication: CARDIOVASCULAR DISORDER
     Route: 048
  2. ROSUVASTATIN. [Suspect]
     Active Substance: ROSUVASTATIN
     Indication: CARDIOVASCULAR DISORDER
     Route: 048
     Dates: start: 20201014, end: 202010
  3. ROSUVASTATIN. [Suspect]
     Active Substance: ROSUVASTATIN
     Indication: CARDIOVASCULAR DISORDER
     Dosage: UNKNOWN DOSE DAILY
     Route: 048

REACTIONS (4)
  - Muscle spasms [Unknown]
  - Carotid artery occlusion [Recovering/Resolving]
  - Myalgia [Unknown]
  - Arrhythmia [Unknown]

NARRATIVE: CASE EVENT DATE: 2018
